FAERS Safety Report 20459989 (Version 5)
Quarter: 2022Q3

REPORT INFORMATION
  Report Type: Report from Study
  Country: US (occurrence: None)
  Receive Date: 20220211
  Receipt Date: 20220719
  Transmission Date: 20221027
  Serious: Yes (Hospitalization, Other)
  Sender: FDA-Public Use
  Company Number: US-ROCHE-2871809

PATIENT
  Age: 60 Year
  Sex: Male
  Weight: 99.8 kg

DRUGS (11)
  1. OBINUTUZUMAB [Suspect]
     Active Substance: OBINUTUZUMAB
     Indication: Chronic lymphocytic leukaemia
     Dosage: LAST ADMINISTERED DATE: 01/JUN/2021?TOTAL DOSE RECEIVED 1000 MG?LAST ADMINISTERED DATE: 28/JUL/2021
     Route: 042
     Dates: start: 20210311
  2. OBINUTUZUMAB [Suspect]
     Active Substance: OBINUTUZUMAB
     Route: 042
  3. OBINUTUZUMAB [Suspect]
     Active Substance: OBINUTUZUMAB
     Route: 042
  4. OBINUTUZUMAB [Suspect]
     Active Substance: OBINUTUZUMAB
     Route: 042
  5. OBINUTUZUMAB [Suspect]
     Active Substance: OBINUTUZUMAB
     Route: 042
  6. VENETOCLAX [Suspect]
     Active Substance: VENETOCLAX
     Indication: Chronic lymphocytic leukaemia
     Dosage: LAST ADMINISTERED DATE: 28/JUN/2021?TOTAL DOSE ADMINISTERED THIS COURSE: 400 MG?DAYS 1-7 CYCLE 3?LAS
     Route: 048
     Dates: start: 20210311
  7. VENETOCLAX [Suspect]
     Active Substance: VENETOCLAX
     Route: 048
  8. VENETOCLAX [Suspect]
     Active Substance: VENETOCLAX
     Route: 048
  9. VENETOCLAX [Suspect]
     Active Substance: VENETOCLAX
     Route: 048
  10. VENETOCLAX [Suspect]
     Active Substance: VENETOCLAX
     Route: 048
  11. IBRUTINIB [Suspect]
     Active Substance: IBRUTINIB
     Indication: Chronic lymphocytic leukaemia
     Dosage: LAST ADMINISTERED DATE: 28/JUN/2021?TOTAL DOSE ADMINISTERED THIS COURSE: 420 MG?DAYS 1-28, CYCLES 1-
     Route: 048
     Dates: start: 20210311

REACTIONS (4)
  - Neutrophil count decreased [Not Recovered/Not Resolved]
  - Febrile neutropenia [Recovering/Resolving]
  - COVID-19 [Recovering/Resolving]
  - Dyspnoea [Recovering/Resolving]

NARRATIVE: CASE EVENT DATE: 20210629
